FAERS Safety Report 10515902 (Version 1)
Quarter: 2014Q4

REPORT INFORMATION
  Report Type: Spontaneous
  Country: US (occurrence: None)
  Receive Date: 20141001
  Receipt Date: 20141001
  Transmission Date: 20150528
  Serious: Yes (Other)
  Sender: FDA-Public Use
  Company Number: 2014003598

PATIENT
  Age: 25 Year
  Sex: Female

DRUGS (2)
  1. VIMPAT [Suspect]
     Active Substance: LACOSAMIDE
  2. KEPPRA [Suspect]
     Active Substance: LEVETIRACETAM

REACTIONS (1)
  - Suicidal ideation [None]
